FAERS Safety Report 20527836 (Version 1)
Quarter: 2022Q1

REPORT INFORMATION
  Report Type: Spontaneous
  Country: GB (occurrence: GB)
  Receive Date: 20220228
  Receipt Date: 20220228
  Transmission Date: 20220424
  Serious: Yes (Hospitalization)
  Sender: FDA-Public Use
  Company Number: None

PATIENT
  Age: 72 Year

DRUGS (16)
  1. OMEPRAZOLE [Interacting]
     Active Substance: OMEPRAZOLE
     Dosage: OMEPRAZOLE 20MG GASTRO-RESISTANT CAPSULES - ONE TO BE TAKEN EACH DAY (IN THE MORNING)
  2. AMITRIPTYLINE [Concomitant]
     Active Substance: AMITRIPTYLINE
     Dosage: AMITRIPTYLINE 50MG TABLETS - ONE TO BE TAKEN AT NIGHT
  3. AMLODIPINE [Concomitant]
     Active Substance: AMLODIPINE BESYLATE
     Dosage: AMLODIPINE 5MG TABLETS - ONE TO BE TAKEN EACH DAY
  4. AMOXICILLIN [Concomitant]
     Active Substance: AMOXICILLIN
     Dosage: AMOXICILLIN 500MG CAPSULES - ONE TO BE TAKEN THREE TIMES A DAY FOR 5 DAYS (RESCUE PACK)
  5. BACLOFEN [Concomitant]
     Active Substance: BACLOFEN
     Dosage: BACLOFEN 10MG TABLETS - TAKE TWO TABLETS THREE TIMES DAILY
  6. CITALOPRAM [Concomitant]
     Active Substance: CITALOPRAM HYDROBROMIDE
     Dosage: CITALOPRAM 20MG TABLETS - ONE TO BE TAKEN EACH DAY (IN THE MORNING)
  7. DOCUSATE [Concomitant]
     Active Substance: DOCUSATE
     Dosage: DOCUSATE 100MG CAPSULES - TAKE 3 MORNING AND 2 AT NIGHT FOR CONSTIPATION. REDUCE WHEN REGULAR BOW...
  8. FUROSEMIDE [Interacting]
     Active Substance: FUROSEMIDE
     Dosage: FUROSEMIDE 40MG TABLETS - ONE TO BE TAKEN EACH MORNING
  9. IRBESARTAN [Concomitant]
     Active Substance: IRBESARTAN
     Dosage: IRBESARTAN 300MG TABLETS - ONE TO BE TAKEN EACH DAY (IN THE MORNING)
  10. LORATADINE [Concomitant]
     Active Substance: LORATADINE
     Dosage: LORATADINE 10MG TABLETS - ONE TO BE TAKEN EACH DAY (IN THE MORNING)
  11. OXYCODONE [Concomitant]
     Active Substance: OXYCODONE
     Dosage: OXYCODONE 5MG/5ML ORAL SOLUTION SUGAR FREE - TAKE 2.5MLS UP TO THREE TIMES A DAY
  12. OXYCODONE [Concomitant]
     Active Substance: OXYCODONE
     Dosage: OXYPRO 10MG MODIFIED-RELEASE TABLETS - ONE TO BE TAKEN EVERY 12 HOURS
  13. PREDNISOLONE [Concomitant]
     Active Substance: PREDNISOLONE
     Dosage: PREDNISOLONE 5MG TABLETS - TAKE EIGHT IN THE MORNING FOR 7 DAYS (RESCUE PACK)
  14. FLUTICASONE PROPIONATE\SALMETEROL XINAFOATE [Concomitant]
     Active Substance: FLUTICASONE PROPIONATE\SALMETEROL XINAFOATE
     Dosage: SERETIDE 500 ACCUHALER - ONE DOSE TO BE INHALED TWICE A DAY
  15. ALBUTEROL [Concomitant]
     Active Substance: ALBUTEROL
     Dosage: SALBUTAMOL 100MICROGRAMS/DOSE BREATH ACTUATED INHALER CFC FREE - ONE OR TWO PUFFS TO BE INHALED U...
  16. UMECLIDINIUM BROMIDE [Concomitant]
     Active Substance: UMECLIDINIUM BROMIDE
     Dosage: INCRUSE ELLIPTA 55MICROGRAMS/DOSE DRY POWDER INHALER - ONE DOSE TO BE INHALED EACH DAY

REACTIONS (2)
  - Hyponatraemia [Unknown]
  - Drug interaction [Unknown]
